FAERS Safety Report 23596718 (Version 1)
Quarter: 2024Q1

REPORT INFORMATION
  Report Type: Spontaneous
  Country: US (occurrence: None)
  Receive Date: 20240305
  Receipt Date: 20240305
  Transmission Date: 20240410
  Serious: Yes (Hospitalization)
  Sender: FDA-Public Use
  Company Number: None

PATIENT
  Sex: Male

DRUGS (10)
  1. ACTEMRA [Suspect]
     Active Substance: TOCILIZUMAB
     Indication: Rheumatoid arthritis
     Dosage: FREQUENCY : WEEKLY;?
     Route: 058
     Dates: start: 20210219
  2. ACTEMRA INJ 80MG/4ML [Concomitant]
  3. ATORVASTATIN [Concomitant]
     Active Substance: ATORVASTATIN
  4. CLOBETASOL [Concomitant]
     Active Substance: CLOBETASOL
  5. DEXAMETH PHO [Concomitant]
  6. FOLIC ACID [Concomitant]
     Active Substance: FOLIC ACID
  7. INDOMETHACIN [Concomitant]
     Active Substance: INDOMETHACIN
  8. METHOTREXATE [Concomitant]
     Active Substance: METHOTREXATE
  9. METHYLPREDNISOLONE [Concomitant]
     Active Substance: METHYLPREDNISOLONE
  10. METOPROLOL TARTRATE [Concomitant]
     Active Substance: METOPROLOL TARTRATE

REACTIONS (4)
  - Rheumatoid arthritis [None]
  - COVID-19 pneumonia [None]
  - Cardiac failure congestive [None]
  - Sensitivity to weather change [None]
